FAERS Safety Report 6811175-9 (Version None)
Quarter: 2010Q2

REPORT INFORMATION
  Report Type: 
  Country: None (occurrence: None)
  Receive Date: 20100630
  Receipt Date: 20090702
  Transmission Date: 20101027
  Serious: No
  Sender: FDA-Public Use
  Company Number: US-AMGEN-KDL354428

PATIENT
  Age: 80 Year
  Sex: Female

DRUGS (1)
  1. PROCRIT [Suspect]
     Indication: DRUG USE FOR UNKNOWN INDICATION
     Dates: end: 20090101

REACTIONS (1)
  - DRUG INEFFECTIVE [None]
